FAERS Safety Report 8847986 (Version 1)
Quarter: 2012Q4

REPORT INFORMATION
  Report Type: 
  Country: US (occurrence: US)
  Receive Date: 20121018
  Receipt Date: 20121018
  Transmission Date: 20130627
  Serious: Yes (Other)
  Sender: FDA-Public Use
  Company Number: US-ROCHE-1142163

PATIENT
  Age: 8 Year
  Sex: Male
  Weight: 32 kg

DRUGS (9)
  1. PROTROPIN [Suspect]
     Indication: GROWTH HORMONE DEFICIENCY
     Route: 058
     Dates: start: 19960909
  2. PROTROPIN [Suspect]
     Indication: DWARFISM
     Route: 058
  3. PROTROPIN [Suspect]
     Route: 058
  4. PROTROPIN [Suspect]
     Route: 058
  5. SYNTHROID [Concomitant]
     Route: 048
  6. SYNTHROID [Concomitant]
     Route: 048
  7. SYNTHROID [Concomitant]
     Route: 048
  8. SYNTHROID [Concomitant]
     Route: 048
  9. RITALIN [Concomitant]
     Route: 065

REACTIONS (9)
  - Chronic sinusitis [Unknown]
  - Fatigue [Unknown]
  - Somnolence [Unknown]
  - Dry skin [Unknown]
  - Temperature intolerance [Unknown]
  - Headache [Unknown]
  - Arthralgia [Unknown]
  - Convulsion [Unknown]
  - Alopecia [Unknown]
